FAERS Safety Report 5915369-6 (Version None)
Quarter: 2008Q4

REPORT INFORMATION
  Report Type: 
  Country: None (occurrence: None)
  Receive Date: 20081010
  Receipt Date: 20081007
  Transmission Date: 20090506
  Serious: Yes (Other)
  Sender: FDA-Public Use
  Company Number: BR-BRISTOL-MYERS SQUIBB COMPANY-14363923

PATIENT
  Age: 17 Year
  Sex: Male

DRUGS (4)
  1. ABILIFY [Suspect]
     Indication: BIPOLAR DISORDER
     Dosage: STARTED AT DOSE OF 5MG
  2. RISPERIDONE [Suspect]
  3. CLONAZEPAM [Concomitant]
  4. PAROXETINE HCL [Concomitant]

REACTIONS (1)
  - HICCUPS [None]
